FAERS Safety Report 8248633-9 (Version None)
Quarter: 2012Q1

REPORT INFORMATION
  Report Type: 
  Country: None (occurrence: None)
  Receive Date: 20120331
  Receipt Date: 20120319
  Transmission Date: 20120608
  Serious: Yes (Hospitalization, Other)
  Sender: FDA-Public Use
  Company Number: US-MYLANLABS-2012S1006624

PATIENT
  Sex: Female

DRUGS (48)
  1. AMOXICILLIN [Concomitant]
  2. CELEBREX [Concomitant]
  3. DURICEF [Concomitant]
     Dosage: X5 DAYS
  4. MINITRAN [Concomitant]
  5. MORPHINE [Concomitant]
  6. RESTORIL [Concomitant]
  7. SERZONE [Concomitant]
  8. AMITRIPTYLINE HCL [Concomitant]
  9. BACLOFEN [Concomitant]
  10. CLAFORAN [Concomitant]
  11. DOXYCYCLINE [Concomitant]
  12. ELAVIL [Concomitant]
  13. LEXAPRO [Concomitant]
  14. ZANAFLEX [Concomitant]
  15. ALBUTEROL [Concomitant]
     Route: 055
  16. COREG [Concomitant]
  17. COUMADIN [Concomitant]
  18. INFLUENZA HA VACCINE [Concomitant]
  19. LASIX [Concomitant]
  20. LISINOPRIL [Concomitant]
  21. PHENERGAN EXPECTORANT W/ CODEINE [Concomitant]
     Dosage: 6.25MG/10MG/5ML EVERY 6 HOURS
  22. DIGOXIN [Suspect]
     Route: 048
     Dates: start: 20000627, end: 20100212
  23. HYDROCODONE BITARTRATE [Concomitant]
     Dosage: 7.5/750MG
  24. PRILOSEC [Concomitant]
  25. AMBIEN [Concomitant]
     Dosage: FOR ONE MONTH
  26. ASPIRIN [Concomitant]
  27. HYCOTUSS [Concomitant]
  28. IRON [Concomitant]
  29. METFORMIN HCL [Concomitant]
  30. TRAZODONE HCL [Concomitant]
  31. ANUSOL /00117301/ [Concomitant]
  32. BIAXIN [Concomitant]
  33. CORTISONE [Concomitant]
     Route: 061
  34. GLYBURIDE [Concomitant]
     Dosage: 5 MG TABLETS
  35. POTASSIUM CHLORIDE [Concomitant]
  36. PRAVASTATIN [Concomitant]
  37. REDUX /01356802/ [Concomitant]
     Dates: start: 19960101, end: 19960101
  38. ZESTRIL [Concomitant]
  39. BENTYL [Concomitant]
  40. NORFLEX [Concomitant]
  41. POTASSIUM [Concomitant]
  42. PROVENTIL [Concomitant]
  43. ULTRAM [Concomitant]
  44. ALDACTONE [Concomitant]
  45. CLARITIN /00917501/ [Concomitant]
  46. DARVOCET [Concomitant]
  47. NITRO-DUR [Concomitant]
  48. VICODIN [Concomitant]

REACTIONS (107)
  - DYSPNOEA EXERTIONAL [None]
  - MITRAL VALVE INCOMPETENCE [None]
  - ARTERIOSCLEROSIS [None]
  - CARPAL TUNNEL SYNDROME [None]
  - DYSPEPSIA [None]
  - RADICULOPATHY [None]
  - NECK PAIN [None]
  - PAIN IN EXTREMITY [None]
  - MUSCULOSKELETAL STIFFNESS [None]
  - OROPHARYNGEAL PAIN [None]
  - RHINORRHOEA [None]
  - SPINAL CORD DISORDER [None]
  - MAMMOGRAM ABNORMAL [None]
  - SPIROMETRY ABNORMAL [None]
  - PRODUCTIVE COUGH [None]
  - HYPERTHYROIDISM [None]
  - DILATATION ATRIAL [None]
  - PLEURAL EFFUSION [None]
  - CARDIOVASCULAR DECONDITIONING [None]
  - RESTRICTIVE PULMONARY DISEASE [None]
  - CONTUSION [None]
  - SPINAL COLUMN STENOSIS [None]
  - OVARIAN CYST [None]
  - UTERINE LEIOMYOMA [None]
  - VENTRICULAR EXTRASYSTOLES [None]
  - SINUS TACHYCARDIA [None]
  - WHEEZING [None]
  - VENTRICULAR DYSFUNCTION [None]
  - BACK PAIN [None]
  - DIARRHOEA [None]
  - OBESITY [None]
  - LETHARGY [None]
  - RESPIRATORY TRACT CONGESTION [None]
  - GASTROOESOPHAGEAL REFLUX DISEASE [None]
  - LABORATORY TEST ABNORMAL [None]
  - SCAN MYOCARDIAL PERFUSION ABNORMAL [None]
  - TENDERNESS [None]
  - DIABETES MELLITUS [None]
  - CARDIOMYOPATHY [None]
  - PULMONARY HYPERTENSION [None]
  - ATELECTASIS [None]
  - AORTIC DISORDER [None]
  - CRYING [None]
  - STRESS URINARY INCONTINENCE [None]
  - FEELING COLD [None]
  - HYPERTROPHIC SCAR [None]
  - PYREXIA [None]
  - RHONCHI [None]
  - CONDITION AGGRAVATED [None]
  - DIASTOLIC DYSFUNCTION [None]
  - ATRIAL SEPTAL DEFECT [None]
  - ABDOMINAL PAIN [None]
  - OEDEMA [None]
  - COSTOCHONDRITIS [None]
  - UPPER RESPIRATORY TRACT INFECTION [None]
  - MUSCULOSKELETAL PAIN [None]
  - OVARIAN ENLARGEMENT [None]
  - LUNG INFILTRATION [None]
  - BREATH SOUNDS ABNORMAL [None]
  - CARDIOMEGALY [None]
  - RESPIRATION ABNORMAL [None]
  - OXYGEN SATURATION ABNORMAL [None]
  - SYNCOPE [None]
  - TACHYCARDIA [None]
  - HYPERTENSION [None]
  - DYSPHAGIA [None]
  - LYMPHOCYTOSIS [None]
  - ORTHOPNOEA [None]
  - OEDEMA PERIPHERAL [None]
  - DYSPNOEA PAROXYSMAL NOCTURNAL [None]
  - FLUID RETENTION [None]
  - LIGAMENT SPRAIN [None]
  - INSOMNIA [None]
  - ROTATOR CUFF SYNDROME [None]
  - JOINT EFFUSION [None]
  - DEPRESSION [None]
  - RALES [None]
  - CARDIAC VALVE DISEASE [None]
  - HAEMOPTYSIS [None]
  - PALPITATIONS [None]
  - FATIGUE [None]
  - MALAISE [None]
  - CHILLS [None]
  - OESOPHAGEAL STENOSIS [None]
  - BACK INJURY [None]
  - ANXIETY [None]
  - MUSCLE STRAIN [None]
  - HAEMORRHOIDS [None]
  - UTERINE ENLARGEMENT [None]
  - ENDOMETRIAL DISORDER [None]
  - LUNG DISORDER [None]
  - ARTHRALGIA [None]
  - JOINT INJURY [None]
  - PNEUMONIA [None]
  - MICROVASCULAR ANGINA [None]
  - DILATATION VENTRICULAR [None]
  - HYPOKINESIA [None]
  - CHEST DISCOMFORT [None]
  - HEADACHE [None]
  - NEUTROPENIA [None]
  - DIZZINESS [None]
  - CHEST PAIN [None]
  - MITRAL VALVE REPAIR [None]
  - WOUND COMPLICATION [None]
  - IMPLANTABLE DEFIBRILLATOR INSERTION [None]
  - CARDIAC MURMUR [None]
  - HYPOTENSION [None]
